FAERS Safety Report 7431273-9 (Version None)
Quarter: 2011Q2

REPORT INFORMATION
  Report Type: 
  Country: None (occurrence: None)
  Receive Date: 20110421
  Receipt Date: 20110119
  Transmission Date: 20111010
  Serious: No
  Sender: FDA-Public Use
  Company Number: US-TEVA-264245USA

PATIENT
  Age: 22 Year
  Sex: Female
  Weight: 61.744 kg

DRUGS (4)
  1. PLAN B ONE-STEP [Suspect]
     Indication: POST COITAL CONTRACEPTION
     Dosage: 1.5 MILLIGRAM;
     Route: 048
     Dates: start: 20101224, end: 20101224
  2. PLAN B ONE-STEP [Suspect]
     Dosage: 1.5 MILLIGRAM;
     Route: 048
     Dates: start: 20110103, end: 20110103
  3. LEVONORGESTREL [Suspect]
     Indication: POST COITAL CONTRACEPTION
     Dates: start: 20101220
  4. ORTHO TRI-CYCLEN LO [Concomitant]
     Indication: CONTRACEPTION

REACTIONS (2)
  - MENORRHAGIA [None]
  - MENSTRUATION IRREGULAR [None]
